FAERS Safety Report 6978032-9 (Version None)
Quarter: 2010Q3

REPORT INFORMATION
  Report Type: 
  Country: None (occurrence: None)
  Receive Date: 20100913
  Receipt Date: 20100831
  Transmission Date: 20110219
  Serious: Yes (Other)
  Sender: FDA-Public Use
  Company Number: US-JNJFOC-20100900560

PATIENT
  Sex: Female
  Weight: 70.31 kg

DRUGS (2)
  1. REMICADE [Suspect]
     Indication: CROHN'S DISEASE
     Route: 042
  2. ALBUTEROL [Concomitant]
     Indication: ASTHMA

REACTIONS (3)
  - LIP SWELLING [None]
  - THERAPEUTIC RESPONSE DECREASED [None]
  - WEIGHT FLUCTUATION [None]
